FAERS Safety Report 7869762-5 (Version None)
Quarter: 2011Q4

REPORT INFORMATION
  Report Type: 
  Country: None (occurrence: None)
  Receive Date: 20111028
  Receipt Date: 20110107
  Transmission Date: 20120403
  Serious: No
  Sender: FDA-Public Use
  Company Number: US-AMGEN-USASP2011001019

PATIENT
  Age: 48 Year
  Sex: Female

DRUGS (5)
  1. METHOTREXATE [Concomitant]
  2. NEXIUM [Concomitant]
  3. ENBREL [Suspect]
     Indication: RHEUMATOID ARTHRITIS
     Dosage: 50 MG, UNK
     Dates: start: 20101201
  4. FOLIC ACID [Concomitant]
  5. ZETIA [Concomitant]

REACTIONS (1)
  - LYMPHADENOPATHY [None]
